FAERS Safety Report 4814820-2 (Version None)
Quarter: 2005Q4

REPORT INFORMATION
  Report Type: 
  Country: None (occurrence: None)
  Receive Date: 20051028
  Receipt Date: 20050107
  Transmission Date: 20060501
  Serious: No
  Sender: FDA-Public Use
  Company Number: US-GLAXOSMITHKLINE-A0539836A

PATIENT
  Age: 34 Year
  Sex: Female

DRUGS (2)
  1. ADVAIR DISKUS 100/50 [Suspect]
     Dosage: 1PUFF TWICE PER DAY
     Route: 055
     Dates: start: 20050103, end: 20050106
  2. RHINOCORT [Concomitant]
     Route: 045

REACTIONS (2)
  - DYSMENORRHOEA [None]
  - SWELLING FACE [None]
